FAERS Safety Report 5297276-8 (Version None)
Quarter: 2007Q2

REPORT INFORMATION
  Report Type: 
  Country: None (occurrence: None)
  Receive Date: 20070416
  Receipt Date: 20070410
  Transmission Date: 20071010
  Serious: Yes (Death)
  Sender: FDA-Public Use
  Company Number: DE-ELI_LILLY_AND_COMPANY-DE200702001757

PATIENT
  Age: 45 Year
  Sex: Male
  Weight: 98 kg

DRUGS (23)
  1. ZYPREXA [Suspect]
     Indication: RESTLESSNESS
     Dosage: 10 MG, DAILY (1/D)
     Route: 030
     Dates: end: 20061212
  2. ZYPREXA [Suspect]
     Dosage: 20 MG, DAILY (1/D)
     Route: 030
     Dates: start: 20061213, end: 20061213
  3. ZYPREXA [Suspect]
     Dosage: 10 MG, DAILY (1/D)
     Route: 030
     Dates: start: 20061214, end: 20061216
  4. ZYPREXA [Suspect]
     Indication: AGITATION
     Dosage: 20 MG, DAILY (1/D)
     Route: 048
     Dates: start: 20061204, end: 20061216
  5. ZYPREXA [Suspect]
     Indication: AGITATION
     Dosage: 5 MG, 2/D
     Route: 048
     Dates: start: 20050101, end: 20061216
  6. FOLIC ACID [Concomitant]
     Dosage: 5 MG, DAILY (1/D)
     Route: 048
  7. MAGIUM K [Concomitant]
     Dosage: 10 MG, 2/D
     Route: 048
  8. PANTOZOL [Concomitant]
     Dosage: 40 MG, DAILY (1/D)
     Route: 048
  9. TEBONIN [Concomitant]
     Dosage: 120 MG, UNK
     Route: 048
  10. UBRETID [Concomitant]
     Dosage: 5 MG, UNK
     Route: 048
  11. BEROTEC [Concomitant]
     Dosage: UNK, 4/D
     Route: 055
  12. EMSER PASTILLEN [Concomitant]
     Route: 048
  13. FLUTIDE NASAL [Concomitant]
     Route: 045
  14. IBUHEXAL [Concomitant]
     Dosage: 400 MG, 2/D
     Route: 048
  15. LEFAX [Concomitant]
     Dosage: UNK, 4/D
     Route: 048
  16. METOCLOPRAMIDE [Concomitant]
     Dosage: 40 GTT, 3/D
     Route: 048
  17. PARACETAMOL [Concomitant]
     Dosage: 500 MG, DAILY (1/D)
     Route: 048
  18. RUBRIMENT/00524001/ [Concomitant]
     Route: 023
  19. TALCID [Concomitant]
     Dosage: UNK, 3/D
     Route: 048
  20. TAVEGIL [Concomitant]
     Dosage: 1 MG, DAILY (1/D)
     Route: 048
  21. LORAZEPAM [Concomitant]
     Dosage: 1 MG, 3/D
     Route: 048
  22. TRUXAL [Concomitant]
     Dosage: 2 ML, 3/D
     Route: 048
  23. YXIN [Concomitant]
     Dosage: UNK, 3/D
     Route: 047

REACTIONS (9)
  - AGITATION [None]
  - APNOEA [None]
  - BLOOD CREATINE PHOSPHOKINASE INCREASED [None]
  - BLOOD GLUCOSE INCREASED [None]
  - BLOOD LACTATE DEHYDROGENASE INCREASED [None]
  - HAEMATOCRIT DECREASED [None]
  - HAEMOGLOBIN DECREASED [None]
  - PRESCRIBED OVERDOSE [None]
  - RED BLOOD CELL COUNT DECREASED [None]
